FAERS Safety Report 22158029 (Version 1)
Quarter: 2023Q1

REPORT INFORMATION
  Report Type: Spontaneous
  Country: CA (occurrence: CA)
  Receive Date: 20230330
  Receipt Date: 20230330
  Transmission Date: 20230418
  Serious: Yes (Hospitalization, Other)
  Sender: FDA-Public Use
  Company Number: CA-ELI_LILLY_AND_COMPANY-CA202303016378

PATIENT
  Age: 53 Year
  Sex: Female

DRUGS (24)
  1. SOMATROPIN [Interacting]
     Active Substance: SOMATROPIN
     Indication: Product used for unknown indication
     Dosage: UNK, UNKNOWN
     Route: 065
  2. BUDESONIDE\FORMOTEROL FUMARATE [Interacting]
     Active Substance: BUDESONIDE\FORMOTEROL FUMARATE
     Indication: Product used for unknown indication
     Dosage: UNK, BID
     Route: 065
  3. BUDESONIDE\FORMOTEROL FUMARATE [Interacting]
     Active Substance: BUDESONIDE\FORMOTEROL FUMARATE
     Dosage: 6 UG
     Route: 065
  4. ERGOCALCIFEROL [Interacting]
     Active Substance: ERGOCALCIFEROL
     Indication: Product used for unknown indication
     Dosage: 1000 INTERNATIONAL UNIT, DAILY
     Route: 048
  5. ESTRADIOL [Interacting]
     Active Substance: ESTRADIOL
     Indication: Product used for unknown indication
     Dosage: 50 UG, DAILY
     Route: 062
  6. LACTOBACILLUS ACIDOPHILUS [Interacting]
     Active Substance: LACTOBACILLUS ACIDOPHILUS
     Indication: Product used for unknown indication
     Dosage: UNK, UNKNOWN
     Route: 048
  7. LINOLEIC ACID [Interacting]
     Active Substance: LINOLEIC ACID
     Indication: Product used for unknown indication
     Dosage: UNK, UNKNOWN
     Route: 048
  8. LORAZEPAM [Interacting]
     Active Substance: LORAZEPAM
     Indication: Product used for unknown indication
     Dosage: 1 MG, DAILY
     Route: 065
  9. DIMETHYL SULFONE [Interacting]
     Active Substance: DIMETHYL SULFONE
     Indication: Product used for unknown indication
     Dosage: 1000 MG, UNKNOWN
  10. PROGESTERONE [Interacting]
     Active Substance: PROGESTERONE
     Indication: Product used for unknown indication
     Dosage: 100 MG, DAILY
     Route: 065
  11. FISH OIL [Interacting]
     Active Substance: FISH OIL
     Indication: Product used for unknown indication
     Dosage: UNK, BID
     Route: 048
  12. VARENICLINE [Interacting]
     Active Substance: VARENICLINE
     Indication: Product used for unknown indication
     Dosage: 0.5 MG, DAILY
     Route: 065
  13. VARENICLINE [Interacting]
     Active Substance: VARENICLINE
     Dosage: 1 MG, BID
     Route: 065
  14. VENLAFAXINE [Interacting]
     Active Substance: VENLAFAXINE HYDROCHLORIDE
     Indication: Product used for unknown indication
     Dosage: 150 MG, UNKNOWN
     Route: 065
  15. BIFIDOBACTERIUM LONGUM [Interacting]
     Active Substance: BIFIDOBACTERIUM LONGUM
     Indication: Product used for unknown indication
     Dosage: UNK, UNKNOWN
     Route: 048
  16. DOCONEXENT [Interacting]
     Active Substance: DOCONEXENT
     Indication: Product used for unknown indication
     Dosage: 120 MG, BID
     Route: 048
  17. ICOSAPENT [Interacting]
     Active Substance: ICOSAPENT
     Indication: Product used for unknown indication
     Dosage: 180 MG, BID
     Route: 048
  18. LACTOBACILLUS CASEI [Interacting]
     Active Substance: LACTOBACILLUS CASEI
     Indication: Product used for unknown indication
     Dosage: UNK, TID
     Route: 065
  19. LACTOBACILLUS RHAMNOSUS [Interacting]
     Active Substance: LACTOBACILLUS RHAMNOSUS
     Indication: Product used for unknown indication
     Dosage: UNK, TID
     Route: 065
  20. .ALPHA.-LIPOIC ACID [Interacting]
     Active Substance: .ALPHA.-LIPOIC ACID
     Indication: Product used for unknown indication
     Dosage: 3.75 MG, UNKNOWN
     Route: 065
  21. UBIDECARENONE [Interacting]
     Active Substance: UBIDECARENONE
     Indication: Product used for unknown indication
     Dosage: 3.75 MG, UNKNOWN
     Route: 065
  22. RETINOL [Interacting]
     Active Substance: RETINOL
     Indication: Product used for unknown indication
     Dosage: 188 MG, BID
     Route: 048
  23. VITAMIN C [Interacting]
     Active Substance: ASCORBIC ACID
     Indication: Product used for unknown indication
     Dosage: 15 MG, BID
     Route: 048
  24. VITAMIN E [Interacting]
     Active Substance: .ALPHA.-TOCOPHEROL
     Indication: Product used for unknown indication
     Dosage: 7.5 MG
     Route: 048

REACTIONS (6)
  - Hepatotoxicity [Unknown]
  - Drug interaction [Unknown]
  - Drug-induced liver injury [Unknown]
  - Hepatic cirrhosis [Unknown]
  - Hepatic encephalopathy [Unknown]
  - Hepatic necrosis [Unknown]
